FAERS Safety Report 7549850-3 (Version None)
Quarter: 2011Q2

REPORT INFORMATION
  Report Type: 
  Country: None (occurrence: None)
  Receive Date: 20110615
  Receipt Date: 20110606
  Transmission Date: 20111010
  Serious: Yes (Hospitalization, Other)
  Sender: FDA-Public Use
  Company Number: GB-ASTRAZENECA-2011SE34517

PATIENT
  Age: 25 Year
  Sex: Female
  Weight: 46 kg

DRUGS (17)
  1. AZITHROMYCIN [Concomitant]
     Route: 048
  2. VORICONAZOLE [Concomitant]
     Route: 048
  3. FLUCONAZOLE [Concomitant]
     Route: 048
  4. MEROPENEM [Suspect]
     Indication: CYSTIC FIBROSIS
     Route: 042
     Dates: start: 20110511, end: 20110511
  5. SYMBICORT [Concomitant]
     Dosage: 2 DF TWICE A DAY
     Route: 055
  6. NOVORAPID [Concomitant]
     Route: 058
  7. CIPROFLOXACIN [Concomitant]
     Route: 048
  8. VITAMIN E [Concomitant]
     Route: 048
  9. COLOMYCIN [Concomitant]
     Route: 042
  10. SALINE MIXTURE [Concomitant]
  11. DOMPERIDONE [Concomitant]
     Route: 048
  12. PREDNISOLONE [Concomitant]
     Route: 048
  13. TOBRAMYCIN [Concomitant]
     Route: 042
  14. PROMIXIN [Concomitant]
  15. TOBRAMYCIN [Concomitant]
     Route: 042
  16. VITAMIN A AND D CONCENTRATE [Concomitant]
     Route: 048
  17. TIOTROPIUM BROMIDE [Concomitant]
     Route: 055

REACTIONS (4)
  - HYPOXIA [None]
  - DYSPNOEA [None]
  - CYANOSIS [None]
  - OXYGEN SATURATION DECREASED [None]
